FAERS Safety Report 9745449 (Version 2)
Quarter: 2013Q4

REPORT INFORMATION
  Report Type: Spontaneous
  Country: BR (occurrence: BR)
  Receive Date: 20131211
  Receipt Date: 20131211
  Transmission Date: 20140711
  Serious: Yes (Death, Hospitalization)
  Sender: FDA-Public Use
  Company Number: BR-SA-2013SA103666

PATIENT
  Sex: Female

DRUGS (3)
  1. LANTUS SOLOSTAR [Suspect]
     Indication: DIABETES MELLITUS
     Route: 058
  2. SOLOSTAR [Concomitant]
     Indication: DEVICE THERAPY
  3. APIDRA [Concomitant]
     Indication: DIABETES MELLITUS

REACTIONS (9)
  - Bronchopneumonia [Fatal]
  - Septic shock [Fatal]
  - Multi-organ failure [Fatal]
  - Blood pressure increased [Not Recovered/Not Resolved]
  - Pneumonia [Unknown]
  - Pain [Unknown]
  - Diabetes mellitus inadequate control [Not Recovered/Not Resolved]
  - Blood glucose increased [Not Recovered/Not Resolved]
  - Chronic obstructive pulmonary disease [Unknown]
